FAERS Safety Report 9922609 (Version 1)
Quarter: 2014Q1

REPORT INFORMATION
  Report Type: Spontaneous
  Country: JP (occurrence: JP)
  Receive Date: 20140225
  Receipt Date: 20140225
  Transmission Date: 20141002
  Serious: No
  Sender: FDA-Public Use
  Company Number: JP-TAKEDA-2014TJP000723

PATIENT
  Sex: Male

DRUGS (3)
  1. LAMPION PACK (LANSOPRAZOLE, AMOXICILLIN, METRONIDAZOLE) [Suspect]
     Indication: HELICOBACTER INFECTION
     Route: 048
  2. LANSAP 400 [Suspect]
     Indication: HELICOBACTER INFECTION
     Route: 048
  3. NEXIUM                             /01479302/ [Concomitant]
     Route: 048

REACTIONS (3)
  - Retinal haemorrhage [Unknown]
  - Flatulence [Not Recovered/Not Resolved]
  - Diarrhoea [Not Recovered/Not Resolved]
